FAERS Safety Report 5473478-2 (Version None)
Quarter: 2007Q3

REPORT INFORMATION
  Report Type: 
  Country: None (occurrence: None)
  Receive Date: 20070828
  Receipt Date: 20070711
  Transmission Date: 20080115
  Serious: Yes (Other)
  Sender: FDA-Public Use
  Company Number: 2007054083

PATIENT

DRUGS (1)
  1. EXUBERA [Suspect]

REACTIONS (3)
  - CARBON MONOXIDE DIFFUSING CAPACITY DECREASED [None]
  - FORCED EXPIRATORY VOLUME DECREASED [None]
  - HYPOGLYCAEMIA [None]
